FAERS Safety Report 11160334 (Version 2)
Quarter: 2020Q3

REPORT INFORMATION
  Report Type: Spontaneous
  Country: US (occurrence: US)
  Receive Date: 20150604
  Receipt Date: 20200806
  Transmission Date: 20201102
  Serious: Yes (Hospitalization, Other)
  Sender: FDA-Public Use
  Company Number: US-SANOFI-AVENTIS-2013SA052351

PATIENT

DRUGS (4)
  1. LANTUS SOLOSTAR [Suspect]
     Active Substance: INSULIN GLARGINE
     Indication: TYPE 2 DIABETES MELLITUS
     Dosage: 35 DF,QD
     Route: 065
     Dates: start: 201210
  2. METFORMIN HYDROCHLORIDE. [Suspect]
     Active Substance: METFORMIN HYDROCHLORIDE
     Dosage: UNK
     Route: 065
  3. LANTUS [Suspect]
     Active Substance: INSULIN GLARGINE
     Indication: TYPE 2 DIABETES MELLITUS
     Dosage: 53 IU, QD
     Route: 065
     Dates: start: 2008
  4. SITAGLIPTIN [Suspect]
     Active Substance: SITAGLIPTIN
     Dosage: UNK
     Route: 065

REACTIONS (6)
  - Incontinence [Not Recovered/Not Resolved]
  - Injection site pain [Not Recovered/Not Resolved]
  - Product storage error [Unknown]
  - Disability [Not Recovered/Not Resolved]
  - Overweight [Not Recovered/Not Resolved]
  - Blood glucose increased [Not Recovered/Not Resolved]
